FAERS Safety Report 10614883 (Version 2)
Quarter: 2015Q3

REPORT INFORMATION
  Report Type: Spontaneous
  Country: GB (occurrence: GB)
  Receive Date: 20141201
  Receipt Date: 20150706
  Transmission Date: 20151125
  Serious: Yes (Hospitalization)
  Sender: FDA-Public Use
  Company Number: GB-ACCORD-027327

PATIENT
  Age: 25 Year

DRUGS (19)
  1. SULFAMETHOXAZOLE/TRIMETHOPRIM [Concomitant]
  2. SODIUM BICARBONATE. [Concomitant]
     Active Substance: SODIUM BICARBONATE
  3. FOLIC ACID. [Concomitant]
     Active Substance: FOLIC ACID
  4. SALMETEROL [Concomitant]
     Active Substance: SALMETEROL
  5. DOXAZOSIN [Concomitant]
     Active Substance: DOXAZOSIN\DOXAZOSIN MESYLATE
  6. LANSOPRAZOLE. [Concomitant]
     Active Substance: LANSOPRAZOLE
  7. SALBUTAMOL [Concomitant]
     Active Substance: ALBUTEROL
  8. TIOTROPIUM/TIOTROPIUM BROMIDE [Concomitant]
  9. CARBOCISTEINE/CARBOCISTEINE LYSINE/CARBOCISTEINE SODIUM [Concomitant]
  10. MYCOPHENOLIC ACID. [Concomitant]
     Active Substance: MYCOPHENOLIC ACID
  11. ALENDRONATE SODIUM/ALENDRONIC ACID [Concomitant]
  12. LEVETIRACETAM. [Suspect]
     Active Substance: LEVETIRACETAM
     Indication: PRODUCT USED FOR UNKNOWN INDICATION
     Dosage: STRENGTH: 500 MG TABLET
  13. ALFACALCIDOL [Concomitant]
     Active Substance: ALFACALCIDOL
  14. PROGRAF [Concomitant]
     Active Substance: TACROLIMUS\TACROLIMUS ANHYDROUS
  15. PERINDOPRIL/PERINDOPRIL ERBUMINE [Concomitant]
  16. RITUXIMAB [Concomitant]
     Active Substance: RITUXIMAB
  17. BISOPROLOL [Concomitant]
     Active Substance: BISOPROLOL
  18. PREDNISOLONE. [Concomitant]
     Active Substance: PREDNISOLONE
  19. ASPIRIN. [Concomitant]
     Active Substance: ASPIRIN

REACTIONS (3)
  - Drug dispensing error [Unknown]
  - Vomiting [Unknown]
  - Diarrhoea [Unknown]
